FAERS Safety Report 10154081 (Version 1)
Quarter: 2014Q2

REPORT INFORMATION
  Report Type: Spontaneous
  Country: US (occurrence: None)
  Receive Date: 20140505
  Receipt Date: 20140505
  Transmission Date: 20141212
  Serious: Yes (Other)
  Sender: FDA-Public Use
  Company Number: None

PATIENT
  Age: 35 Year
  Sex: Female

DRUGS (4)
  1. LAMOTRIGINE [Suspect]
     Indication: AFFECTIVE DISORDER
  2. PAROXETINE [Concomitant]
  3. LORAZEPAM [Concomitant]
  4. LAMOTRIGINE [Concomitant]

REACTIONS (5)
  - Psychiatric decompensation [None]
  - Affect lability [None]
  - Somnolence [None]
  - Agitation [None]
  - Suicidal ideation [None]
